FAERS Safety Report 20433430 (Version 2)
Quarter: 2022Q1

REPORT INFORMATION
  Report Type: Report from Study
  Country: KR (occurrence: None)
  Receive Date: 20220205
  Receipt Date: 20220216
  Transmission Date: 20220423
  Serious: Yes (Hospitalization)
  Sender: FDA-Public Use
  Company Number: KR-ROCHE-3014308

PATIENT
  Age: 68 Year
  Sex: Female
  Weight: 48.3 kg

DRUGS (44)
  1. ATEZOLIZUMAB [Suspect]
     Active Substance: ATEZOLIZUMAB
     Indication: Ovarian cancer recurrent
     Dosage: MOST RECENT DOSE OF STUDY DRUG PRIOR TO AE: 17/DEC/2021 11:20 - 11:50 AM
     Route: 041
     Dates: start: 20211105
  2. BEVACIZUMAB [Suspect]
     Active Substance: BEVACIZUMAB
     Indication: Ovarian cancer recurrent
     Dosage: MOST RECENT DOSE OF STUDY DRUG PRIOR TO AE: 17/DEC/2021 12:00 - 12:30 PM
     Route: 042
     Dates: start: 20211105
  3. ANYFEN [Concomitant]
     Indication: Arthritis
     Route: 048
     Dates: start: 20211026, end: 20211101
  4. ANYFEN [Concomitant]
     Route: 048
     Dates: start: 20211119, end: 20211214
  5. MORPHINE SULFATE [Concomitant]
     Active Substance: MORPHINE SULFATE
     Indication: Abdominal pain
     Route: 042
     Dates: start: 20211214, end: 20211214
  6. TAGAMET [Concomitant]
     Active Substance: CIMETIDINE
     Indication: Abdominal pain
     Route: 042
     Dates: start: 20211214, end: 20211220
  7. AMOBUROFEN [Concomitant]
     Indication: Abdominal pain
     Route: 042
     Dates: start: 20211214, end: 20211216
  8. NEXIUM [Concomitant]
     Active Substance: ESOMEPRAZOLE MAGNESIUM
     Route: 042
     Dates: start: 20211214, end: 20211220
  9. AMINO ACIDS\DEXTROSE\ELECTROLYTES NOS\SOYBEAN OIL\VITAMINS [Concomitant]
     Active Substance: AMINO ACIDS\DEXTROSE\ELECTROLYTES NOS\SOYBEAN OIL\VITAMINS
     Indication: Hypophagia
     Route: 042
     Dates: start: 20211214, end: 20211221
  10. FURTMAN [Concomitant]
     Indication: Hypophagia
     Route: 042
     Dates: start: 20211214, end: 20211221
  11. FURTMAN [Concomitant]
     Route: 042
     Dates: start: 20220103
  12. FENTANYL [Concomitant]
     Active Substance: FENTANYL
     Indication: Abdominal pain
     Route: 062
     Dates: start: 20211215, end: 20211226
  13. MEGACE [Concomitant]
     Active Substance: MEGESTROL ACETATE
     Indication: Hypophagia
     Route: 048
     Dates: start: 20211216, end: 20211226
  14. MEGACE [Concomitant]
     Active Substance: MEGESTROL ACETATE
     Route: 048
     Dates: start: 20220103
  15. METOCLOPRAMIDE HYDROCHLORIDE [Concomitant]
     Active Substance: METOCLOPRAMIDE HYDROCHLORIDE
     Indication: Prophylaxis of nausea and vomiting
     Route: 042
     Dates: start: 20211216, end: 20211216
  16. SANCUSO [Concomitant]
     Active Substance: GRANISETRON
     Indication: Prophylaxis of nausea and vomiting
     Route: 062
     Dates: start: 20211216, end: 20211223
  17. MEPERIDINE [Concomitant]
     Active Substance: MEPERIDINE
     Route: 030
     Dates: start: 20211216, end: 20211216
  18. OXYCODONE HYDROCHLORIDE [Concomitant]
     Active Substance: OXYCODONE HYDROCHLORIDE
     Indication: Abdominal pain
     Route: 042
     Dates: start: 20211217, end: 20211217
  19. ALBUMIN HUMAN [Concomitant]
     Active Substance: ALBUMIN HUMAN
     Route: 042
     Dates: start: 20211218, end: 20211218
  20. MAGNESIUM OXIDE [Concomitant]
     Active Substance: MAGNESIUM OXIDE
     Indication: Constipation
     Route: 048
     Dates: start: 20211218, end: 20211220
  21. PROFA [Concomitant]
     Route: 042
     Dates: start: 20211220, end: 20211220
  22. LACTULOSE [Concomitant]
     Active Substance: LACTULOSE
     Indication: Constipation
     Route: 042
     Dates: start: 20211220, end: 20211226
  23. LACTULOSE [Concomitant]
     Active Substance: LACTULOSE
     Route: 042
     Dates: start: 20220103
  24. GASTER [Concomitant]
     Active Substance: FAMOTIDINE
     Route: 048
     Dates: start: 20211221, end: 20211226
  25. GASTER [Concomitant]
     Active Substance: FAMOTIDINE
     Route: 048
     Dates: start: 20211231, end: 20220101
  26. NORVASC [Concomitant]
     Active Substance: AMLODIPINE BESYLATE
     Indication: Hypertension
     Route: 048
     Dates: start: 20211220
  27. DICHLOZID [Concomitant]
     Indication: Hypertension
     Route: 048
     Dates: start: 20211221
  28. SODIUM CHLORIDE [Concomitant]
     Active Substance: SODIUM CHLORIDE
     Indication: Blood creatinine increased
     Route: 042
     Dates: start: 20211227, end: 20220101
  29. METOCLOPRAMIDE HYDROCHLORIDE [Concomitant]
     Active Substance: METOCLOPRAMIDE HYDROCHLORIDE
     Indication: Prophylaxis of nausea and vomiting
     Route: 042
     Dates: start: 20211227, end: 20211227
  30. HUMULIN R [Concomitant]
     Active Substance: INSULIN HUMAN
     Route: 058
     Dates: start: 20211227, end: 20211227
  31. MEPERIDINE [Concomitant]
     Active Substance: MEPERIDINE
     Route: 030
     Dates: start: 20211227, end: 20211227
  32. MEPERIDINE [Concomitant]
     Active Substance: MEPERIDINE
     Route: 030
     Dates: start: 20220103, end: 20220103
  33. TRIAXONE [Concomitant]
     Indication: Infection prophylaxis
     Route: 042
     Dates: start: 20211227, end: 20211231
  34. TRAMADOL HYDROCHLORIDE [Concomitant]
     Active Substance: TRAMADOL HYDROCHLORIDE
     Indication: Tumour pain
     Route: 042
     Dates: start: 20211228, end: 20211231
  35. TRAMADOL HYDROCHLORIDE [Concomitant]
     Active Substance: TRAMADOL HYDROCHLORIDE
     Route: 042
     Dates: start: 20220103, end: 20220104
  36. ACETAMINOPHEN [Concomitant]
     Active Substance: ACETAMINOPHEN
     Indication: Tumour pain
     Route: 048
     Dates: start: 20211228, end: 20211229
  37. NEXIUM [Concomitant]
     Active Substance: ESOMEPRAZOLE MAGNESIUM
     Route: 042
     Dates: start: 20211228, end: 20211230
  38. LASIX [Concomitant]
     Active Substance: FUROSEMIDE
     Route: 042
     Dates: start: 20211229, end: 20211230
  39. MICARDIS [Concomitant]
     Active Substance: TELMISARTAN
     Indication: Hypertension
     Route: 048
     Dates: start: 20211231, end: 20220101
  40. CLOCEF [CEFACLOR] [Concomitant]
     Indication: Infection prophylaxis
     Route: 048
     Dates: start: 20220101, end: 20220102
  41. SODIUM CHLORIDE [Concomitant]
     Active Substance: SODIUM CHLORIDE
     Indication: Blood creatinine increased
     Route: 042
     Dates: start: 20220103
  42. CEFTRIAXONE [Concomitant]
     Active Substance: CEFTRIAXONE
     Indication: Infection prophylaxis
     Route: 042
     Dates: start: 20220103
  43. NALOXONE HYDROCHLORIDE\OXYCODONE HYDROCHLORIDE [Concomitant]
     Active Substance: NALOXONE HYDROCHLORIDE\OXYCODONE HYDROCHLORIDE
     Indication: Tumour pain
     Route: 048
     Dates: start: 20220103
  44. KABITWIN PERI [Concomitant]
     Indication: Hypophagia
     Route: 042
     Dates: start: 20220103, end: 20220104

REACTIONS (1)
  - Atypical pneumonia [Not Recovered/Not Resolved]

NARRATIVE: CASE EVENT DATE: 20220125
